FAERS Safety Report 6823216-3 (Version None)
Quarter: 2010Q3

REPORT INFORMATION
  Report Type: 
  Country: None (occurrence: None)
  Receive Date: 20100708
  Receipt Date: 20100706
  Transmission Date: 20110219
  Serious: Yes (Hospitalization)
  Sender: FDA-Public Use
  Company Number: FR-WYE-G06367410

PATIENT
  Sex: Male

DRUGS (2)
  1. ADVIL LIQUI-GELS [Suspect]
     Dosage: 1200 MG PER DAY, ON DEMAND.
     Route: 048
     Dates: start: 20100701, end: 20100704
  2. ADVIL LIQUI-GELS [Suspect]
     Dosage: 1200 MG PER DAY, ON DEMAND.
     Route: 048
     Dates: start: 20100601, end: 20100601

REACTIONS (1)
  - DRUG RASH WITH EOSINOPHILIA AND SYSTEMIC SYMPTOMS [None]
